FAERS Safety Report 9251083 (Version 2)
Quarter: 2013Q2

REPORT INFORMATION
  Report Type: Spontaneous
  Country: US (occurrence: US)
  Receive Date: 20130424
  Receipt Date: 20130611
  Transmission Date: 20140414
  Serious: Yes (Hospitalization, Other)
  Sender: FDA-Public Use
  Company Number: PHEH2013US009015

PATIENT
  Sex: Male

DRUGS (9)
  1. DIOVAN [Suspect]
     Dosage: 160 MG, UNK
  2. DIOVAN [Suspect]
     Dosage: 320 MG, UNK
  3. TOPROL [Concomitant]
     Dosage: UNK UKN, UNK
  4. NEXIUM I.V. [Concomitant]
     Dosage: UNK UKN, UNK
  5. XANAX [Concomitant]
     Dosage: UNK UKN, UNK
  6. PAXIL [Concomitant]
     Dosage: UNK UKN, UNK
  7. NIACIN [Concomitant]
     Dosage: UNK UKN, UNK
  8. RANEXA [Concomitant]
     Dosage: UNK UKN, UNK
  9. BABY ASPIRIN [Concomitant]
     Dosage: UNK UKN, UNK

REACTIONS (2)
  - Haemoptysis [Unknown]
  - Bronchitis [Unknown]
